FAERS Safety Report 8377992-1 (Version None)
Quarter: 2012Q2

REPORT INFORMATION
  Report Type: 
  Country: None (occurrence: None)
  Receive Date: 20120522
  Receipt Date: 20120508
  Transmission Date: 20120825
  Serious: Yes (Other)
  Sender: FDA-Public Use
  Company Number: CN-JNJFOC-20120511262

PATIENT
  Age: 21 Year
  Sex: Female

DRUGS (2)
  1. RISPERDAL [Suspect]
     Indication: SCHIZOPHRENIA
     Route: 048
     Dates: start: 20110801, end: 20110901
  2. RISPERDAL [Suspect]
     Route: 048
     Dates: start: 20120418

REACTIONS (1)
  - EYELID PTOSIS [None]
